FAERS Safety Report 4989940-2 (Version None)
Quarter: 2006Q2

REPORT INFORMATION
  Report Type: 
  Country: None (occurrence: None)
  Receive Date: 20060503
  Receipt Date: 20060116
  Transmission Date: 20061013
  Serious: Yes (Hospitalization)
  Sender: FDA-Public Use
  Company Number: DE-AMGEN-UK165015

PATIENT
  Sex: Male

DRUGS (2)
  1. ARANESP [Suspect]
     Indication: RENAL FAILURE CHRONIC
     Route: 058
     Dates: start: 20040929, end: 20060201
  2. IRON [Concomitant]
     Route: 065

REACTIONS (2)
  - ANAEMIA [None]
  - IRON DEFICIENCY ANAEMIA [None]
